FAERS Safety Report 24417610 (Version 1)
Quarter: 2024Q4

REPORT INFORMATION
  Report Type: Spontaneous
  Country: US (occurrence: US)
  Receive Date: 20241009
  Receipt Date: 20241009
  Transmission Date: 20250115
  Serious: Yes (Other)
  Sender: PFIZER
  Company Number: US-PFIZER INC-202400272772

PATIENT
  Age: 54 Year
  Sex: Female

DRUGS (8)
  1. XELJANZ XR [Suspect]
     Active Substance: TOFACITINIB CITRATE
     Dosage: TAKE 11 MG TABLET ORAL DAILY
     Route: 048
     Dates: start: 2020
  2. DULOXETINE [Concomitant]
     Active Substance: DULOXETINE
     Dosage: UNK
  3. BUTALBITAL AND ACETAMINOPHEN [Concomitant]
     Active Substance: ACETAMINOPHEN\BUTALBITAL
     Dosage: UNK
  4. AMITRIPTYLINE HYDROCHLORIDE [Concomitant]
     Active Substance: AMITRIPTYLINE HYDROCHLORIDE
     Dosage: UNK
  5. ACETAMINOPHEN\HYDROCODONE [Concomitant]
     Active Substance: ACETAMINOPHEN\HYDROCODONE
     Dosage: UNK
  6. GABAPENTIN [Concomitant]
     Active Substance: GABAPENTIN
     Dosage: UNK
  7. ACYCLOVIR [Concomitant]
     Active Substance: ACYCLOVIR
     Dosage: UNK
  8. DIETARY SUPPLEMENT\HERBALS\MILK THISTLE [Concomitant]
     Active Substance: MILK THISTLE
     Dosage: UNK

REACTIONS (4)
  - Neck surgery [Recovered/Resolved]
  - Allergy to chemicals [Unknown]
  - Post procedural complication [Unknown]
  - Erythema [Unknown]

NARRATIVE: CASE EVENT DATE: 20240801
